FAERS Safety Report 12618449 (Version 1)
Quarter: 2016Q3

REPORT INFORMATION
  Report Type: Spontaneous
  Country: DE (occurrence: DE)
  Receive Date: 20160803
  Receipt Date: 20160803
  Transmission Date: 20161109
  Serious: Yes (Life-Threatening, Hospitalization, Other)
  Sender: FDA-Public Use
  Company Number: DE-GLAXOSMITHKLINE-DE2016GSK111144

PATIENT
  Age: 18 Month
  Sex: Male
  Weight: 11 kg

DRUGS (4)
  1. IBUPROFEN. [Concomitant]
     Active Substance: IBUPROFEN
     Indication: INTERVERTEBRAL DISCITIS
     Dosage: 110 MG, TID
     Route: 048
     Dates: start: 20160309, end: 20160419
  2. CLINDAMYCIN [Suspect]
     Active Substance: CLINDAMYCIN\CLINDAMYCIN PHOSPHATE
     Indication: INTERVERTEBRAL DISCITIS
     Dosage: 150 MG, TID
     Route: 042
     Dates: start: 20160309, end: 20160420
  3. CEFUROXIM [Suspect]
     Active Substance: CEFUROXIME
     Indication: INTERVERTEBRAL DISCITIS
     Dosage: 570 MG, TID
     Route: 042
     Dates: start: 20160329, end: 20160420
  4. AMPICILLIN AND SULBACTAM [Suspect]
     Active Substance: AMPICILLIN SODIUM\SULBACTAM SODIUM
     Indication: INTERVERTEBRAL DISCITIS
     Dosage: 750 MG, TID
     Route: 042
     Dates: start: 20160309, end: 20160329

REACTIONS (1)
  - Agranulocytosis [Recovered/Resolved]

NARRATIVE: CASE EVENT DATE: 20160419
